FAERS Safety Report 8399732-2 (Version None)
Quarter: 2012Q2

REPORT INFORMATION
  Report Type: 
  Country: None (occurrence: None)
  Receive Date: 20120531
  Receipt Date: 20120523
  Transmission Date: 20120825
  Serious: No
  Sender: FDA-Public Use
  Company Number: US-ASTRAZENECA-2012SE33570

PATIENT
  Age: 57 Year
  Sex: Female

DRUGS (3)
  1. MICARDIS [Concomitant]
  2. CRESTOR [Suspect]
     Route: 048
  3. HYDROCHLOROTHIAZIDE [Concomitant]

REACTIONS (4)
  - BLOOD CHOLESTEROL INCREASED [None]
  - BLOOD GLUCOSE INCREASED [None]
  - PYREXIA [None]
  - WEIGHT INCREASED [None]
